FAERS Safety Report 8384079-0 (Version None)
Quarter: 2012Q2

REPORT INFORMATION
  Report Type: 
  Country: None (occurrence: None)
  Receive Date: 20120524
  Receipt Date: 20120510
  Transmission Date: 20120825
  Serious: Yes (Hospitalization, Other)
  Sender: FDA-Public Use
  Company Number: AU-CELGENEUS-008-AB007-12031483

PATIENT
  Sex: Male
  Weight: 85.4 kg

DRUGS (32)
  1. ABRAXANE [Suspect]
     Route: 041
     Dates: start: 20120307, end: 20120402
  2. GEMCITABINE [Suspect]
     Route: 041
     Dates: start: 20120320, end: 20120402
  3. GEMCITABINE [Suspect]
     Route: 041
     Dates: start: 20120416
  4. CANDESARTAN CILEXETIL [Concomitant]
     Indication: HYPERTENSION
     Route: 048
     Dates: start: 20110101
  5. HYDROMORPHONE HCL [Concomitant]
     Dosage: 2-4
     Route: 058
  6. LANTUS [Concomitant]
     Route: 058
  7. DEXAMETHASONE [Concomitant]
     Indication: PROPHYLAXIS
     Route: 041
     Dates: start: 20120307
  8. METOCLOPRAMIDE [Concomitant]
     Dosage: 30 MILLIGRAM
     Route: 048
     Dates: start: 20120307
  9. GABAPENTIN [Concomitant]
     Route: 048
  10. ATORVASTATIN CALCIUM [Concomitant]
     Indication: HYPERCHOLESTEROLAEMIA
     Route: 048
     Dates: start: 20010101, end: 20120301
  11. VOLTAREN [Concomitant]
     Indication: ABDOMINAL DISCOMFORT
     Route: 048
     Dates: start: 20111201, end: 20120215
  12. MOVIPREP [Concomitant]
     Dosage: SACHET
     Route: 048
  13. GRANISETRON [Concomitant]
     Indication: PROPHYLAXIS
     Route: 048
     Dates: start: 20120307
  14. LACTULOSE [Concomitant]
     Indication: LAXATIVE SUPPORTIVE CARE
     Route: 048
     Dates: start: 20120328, end: 20120401
  15. AMITRIPTYLINE HCL [Concomitant]
     Route: 048
  16. GABAPENTIN [Concomitant]
     Route: 048
  17. ABRAXANE [Suspect]
     Route: 041
     Dates: start: 20120320, end: 20120402
  18. ABRAXANE [Suspect]
     Route: 041
     Dates: start: 20120416
  19. GEMCITABINE [Suspect]
     Route: 041
     Dates: start: 20120307
  20. DEXAMETHASONE [Concomitant]
     Indication: NAUSEA
     Route: 058
     Dates: start: 20120329, end: 20120301
  21. CYCLIZINE [Concomitant]
     Indication: RASH
     Route: 058
     Dates: start: 20120323
  22. NILSTAT [Concomitant]
     Route: 048
     Dates: start: 20120326, end: 20120403
  23. CEPHALEXIN [Concomitant]
     Indication: PROPHYLAXIS
     Route: 048
     Dates: start: 20120314, end: 20120320
  24. ESOMEPRAZOLE MAGNESIUM [Concomitant]
     Route: 048
  25. ENOXAPARIN SODIUM [Concomitant]
     Route: 058
     Dates: start: 20120328, end: 20120401
  26. LIANOLAINE [Concomitant]
     Indication: HAEMORRHOIDS
     Route: 061
     Dates: start: 20120329
  27. HYDROMORPHONE HCL [Concomitant]
     Route: 058
  28. MOVIPREP [Concomitant]
     Route: 048
  29. CARTIA XT [Concomitant]
     Indication: PROPHYLAXIS
     Route: 048
     Dates: start: 20110101, end: 20120301
  30. DEXAMETHASONE [Concomitant]
     Dosage: 6 MILLIGRAM
     Route: 048
  31. CIPROFLOXACIN [Concomitant]
     Route: 065
  32. PANTOPRAZOLE [Concomitant]
     Indication: PROPHYLAXIS AGAINST GASTROINTESTINAL ULCER
     Route: 041
     Dates: start: 20120326

REACTIONS (4)
  - VOMITING [None]
  - COLITIS [None]
  - PYREXIA [None]
  - LIVER FUNCTION TEST ABNORMAL [None]
